FAERS Safety Report 6827340-0 (Version None)
Quarter: 2010Q3

REPORT INFORMATION
  Report Type: 
  Country: None (occurrence: None)
  Receive Date: 20100709
  Receipt Date: 20070109
  Transmission Date: 20110219
  Serious: No
  Sender: FDA-Public Use
  Company Number: US-PFIZER INC-2007003320

PATIENT
  Sex: Female
  Weight: 86.18 kg

DRUGS (3)
  1. CHANTIX [Suspect]
     Indication: SMOKING CESSATION THERAPY
     Dates: start: 20070103
  2. ALPRAZOLAM [Concomitant]
     Indication: INSOMNIA
  3. VYTORIN [Concomitant]

REACTIONS (2)
  - GLOSSODYNIA [None]
  - INSOMNIA [None]
